FAERS Safety Report 17439242 (Version 1)
Quarter: 2020Q1

REPORT INFORMATION
  Report Type: Spontaneous
  Country: US (occurrence: US)
  Receive Date: 20200220
  Receipt Date: 20200220
  Transmission Date: 20200409
  Serious: Yes (Other)
  Sender: FDA-Public Use
  Company Number: US-GLAXOSMITHKLINE-US2020028546

PATIENT
  Age: 26 Year
  Sex: Female

DRUGS (1)
  1. EQUATE NICOTINE [Suspect]
     Active Substance: NICOTINE
     Indication: PRODUCT USED FOR UNKNOWN INDICATION
     Dosage: UNK
     Dates: start: 202002

REACTIONS (3)
  - Application site pruritus [Unknown]
  - Application site hypersensitivity [Unknown]
  - Application site rash [Unknown]

NARRATIVE: CASE EVENT DATE: 20200214
